FAERS Safety Report 6503433-2 (Version None)
Quarter: 2009Q4

REPORT INFORMATION
  Report Type: 
  Country: None (occurrence: None)
  Receive Date: 20091217
  Receipt Date: 20091207
  Transmission Date: 20100525
  Serious: Yes (Hospitalization)
  Sender: FDA-Public Use
  Company Number: US-JNJFOC-20090608626

PATIENT
  Sex: Female
  Weight: 63.5 kg

DRUGS (6)
  1. REMICADE [Suspect]
     Indication: CROHN'S DISEASE
     Dosage: INITAL DOSING AND THEN EVERY 8 WEEKS
     Route: 042
  2. PHENERGAN HCL [Concomitant]
  3. PREDNISONE [Concomitant]
  4. LORTAB [Concomitant]
  5. VALIUM [Concomitant]
  6. TYLENOL (CAPLET) [Concomitant]
     Indication: PAIN

REACTIONS (9)
  - BACK PAIN [None]
  - CARDIAC FAILURE CONGESTIVE [None]
  - CROHN'S DISEASE [None]
  - LIVER FUNCTION TEST ABNORMAL [None]
  - MYALGIA [None]
  - ONYCHOMADESIS [None]
  - PNEUMOCYSTIS JIROVECI PNEUMONIA [None]
  - PYELONEPHRITIS [None]
  - RASH [None]
